FAERS Safety Report 5828580-X (Version None)
Quarter: 2008Q3

REPORT INFORMATION
  Report Type: 
  Country: None (occurrence: None)
  Receive Date: 20080729
  Receipt Date: 20080729
  Transmission Date: 20090109
  Serious: Yes (Life-Threatening)
  Sender: FDA-Public Use
  Company Number: None

PATIENT
  Age: 63 Year
  Sex: Male
  Weight: 78.0187 kg

DRUGS (3)
  1. GEMCITABINE [Suspect]
     Indication: NON-SMALL CELL LUNG CANCER
     Dosage: 1940 MG IV
     Route: 042
     Dates: start: 20070404, end: 20070523
  2. DOCETAXEL [Suspect]
     Indication: NON-SMALL CELL LUNG CANCER
     Dosage: 58 MG IV
     Route: 042
     Dates: start: 20070404, end: 20070523
  3. CETUXIMAB 250 MG/M2 (BRISTOL-MYERS SQUIBB) [Suspect]
     Indication: NON-SMALL CELL LUNG CANCER
     Dosage: 485 MG IV, ONCE WEEKLY
     Route: 042

REACTIONS (4)
  - CAROTID ARTERY OCCLUSION [None]
  - CEREBRAL INFARCTION [None]
  - LUNG NEOPLASM MALIGNANT [None]
  - MALIGNANT NEOPLASM PROGRESSION [None]
